FAERS Safety Report 7466520-0 (Version None)
Quarter: 2011Q2

REPORT INFORMATION
  Report Type: 
  Country: None (occurrence: None)
  Receive Date: 20110509
  Receipt Date: 20110108
  Transmission Date: 20111010
  Serious: No
  Sender: FDA-Public Use
  Company Number: US-SANOFI-AVENTIS-2011SA001910

PATIENT
  Sex: Female
  Weight: 81 kg

DRUGS (18)
  1. LANTUS [Suspect]
     Dates: start: 20101216
  2. VITAMIN E [Concomitant]
  3. LITHIUM [Concomitant]
     Indication: BIPOLAR DISORDER
     Dates: start: 19760101
  4. LANTUS [Suspect]
     Dosage: DOSE:38 UNIT(S)
     Route: 058
     Dates: start: 20101216
  5. ALENDRONATE SODIUM [Concomitant]
     Indication: BONE DISORDER
     Dates: start: 20020101
  6. CELEXA [Concomitant]
     Indication: DEPRESSION
     Dates: start: 20100101
  7. LAMICTAL [Concomitant]
     Indication: DEPRESSION
     Dates: start: 20080101
  8. VITAMIN B COMPLEX CAP [Concomitant]
  9. SYNTHROID [Concomitant]
     Indication: THYROID DISORDER
     Dates: start: 20010101
  10. ASPIRIN [Concomitant]
     Dates: start: 20010101
  11. COLACE [Concomitant]
     Indication: CONSTIPATION
     Dates: start: 20101216
  12. APIDRA [Suspect]
     Dosage: TOOK 13 UNITS AT BREAKFAST TIME, 14 UNITS AT LUNCH AND 14 AT SUPPER.
     Route: 058
     Dates: start: 20101216
  13. TRIAMTERENE AND HYDROCHLOROTHIAZIDE [Concomitant]
     Dates: start: 20010101
  14. LYRICA [Concomitant]
     Indication: NEUROPATHY PERIPHERAL
     Dates: start: 20070101
  15. LANTUS [Suspect]
     Dates: start: 20101216
  16. LIPITOR [Concomitant]
     Dates: start: 20010101
  17. GEODON [Concomitant]
     Dates: start: 20060101
  18. SENOKOT /UNK/ [Concomitant]
     Indication: CONSTIPATION
     Dates: start: 20101212

REACTIONS (4)
  - TREMOR [None]
  - BLOOD GLUCOSE INCREASED [None]
  - VISUAL IMPAIRMENT [None]
  - NEUROPATHY PERIPHERAL [None]
